FAERS Safety Report 24889405 (Version 2)
Quarter: 2025Q1

REPORT INFORMATION
  Report Type: Spontaneous
  Country: US (occurrence: US)
  Receive Date: 20250127
  Receipt Date: 20250304
  Transmission Date: 20250409
  Serious: No
  Sender: Kenvue
  Company Number: US-KENVUE-20250100268

PATIENT
  Age: 79 Year
  Sex: Male

DRUGS (1)
  1. MENS ROGAINE EXTRA STRENGTH [Suspect]
     Active Substance: MINOXIDIL
     Indication: Alopecia
     Dosage: ONE DROPPER TO THE LINE, TWICE A DAY
     Route: 061
     Dates: start: 202410

REACTIONS (8)
  - Dandruff [Not Recovered/Not Resolved]
  - Seborrhoea [Unknown]
  - Application site rash [Unknown]
  - Application site exfoliation [Unknown]
  - Application site erythema [Unknown]
  - Application site pruritus [Unknown]
  - Application site scab [Unknown]
  - Rash [Unknown]

NARRATIVE: CASE EVENT DATE: 20241201
